FAERS Safety Report 7096958-5 (Version None)
Quarter: 2010Q4

REPORT INFORMATION
  Report Type: 
  Country: None (occurrence: None)
  Receive Date: 20101103
  Receipt Date: 20101027
  Transmission Date: 20110411
  Serious: Yes (Other)
  Sender: FDA-Public Use
  Company Number: 724540

PATIENT
  Age: 11 Year
  Sex: Female
  Weight: 34.26 kg

DRUGS (8)
  1. METHOTREXATE [Suspect]
     Indication: POLYARTHRITIS
     Dosage: 15 MG MILLIGRAM(S), 1 WEEK, SUBCUTANEOUS
     Route: 058
     Dates: start: 20080201, end: 20080401
  2. METHOTREXATE [Suspect]
     Indication: POLYARTHRITIS
     Dosage: 15 MG MILLIGRAM(S), 1 WEEK, ORAL
     Route: 048
     Dates: start: 20080201
  3. (CALCIUM) [Concomitant]
  4. MULTI-VITAMINS [Concomitant]
  5. NAPROXEN [Concomitant]
  6. (OMEGA-3 /00931501/) [Concomitant]
  7. (ROSA GALLICA) [Concomitant]
  8. LOSEC /00661201/) [Concomitant]

REACTIONS (3)
  - MENTAL DISORDER [None]
  - MOOD ALTERED [None]
  - SUICIDAL IDEATION [None]
